FAERS Safety Report 5281646-8 (Version None)
Quarter: 2007Q1

REPORT INFORMATION
  Report Type: 
  Country: None (occurrence: None)
  Receive Date: 20061215
  Receipt Date: 20060614
  Transmission Date: 20070707
  Serious: Yes (Hospitalization)
  Sender: FDA-Public Use
  Company Number: HQWYE233315JUN06

PATIENT
  Age: 57 Year
  Sex: Female
  Weight: 69.46 kg

DRUGS (6)
  1. EFFEXOR XR [Suspect]
     Indication: DEPRESSION
     Dosage: 150 MG 1X PER 1 DAY, ORAL
     Route: 048
     Dates: start: 20060410, end: 20060523
  2. ARICEPT [Concomitant]
  3. NAMENDA [Concomitant]
  4. FOLIC AICD (FOLIC ACID) [Concomitant]
  5. ACTONEL [Concomitant]
  6. LIPITOR [Concomitant]

REACTIONS (1)
  - CONVULSION [None]
